FAERS Safety Report 7644063-9 (Version None)
Quarter: 2011Q3

REPORT INFORMATION
  Report Type: 
  Country: None (occurrence: None)
  Receive Date: 20110729
  Receipt Date: 20110719
  Transmission Date: 20111222
  Serious: Yes (Other)
  Sender: FDA-Public Use
  Company Number: US-JNJFOC-20110409424

PATIENT
  Sex: Male
  Weight: 74.84 kg

DRUGS (5)
  1. LITHIUM CARBONATE [Concomitant]
     Indication: DEPRESSION
     Route: 065
  2. LAMICTAL [Concomitant]
     Indication: DEPRESSION
     Route: 065
  3. ZYRTEC [Suspect]
     Route: 048
  4. ZYRTEC [Suspect]
     Indication: EYE PRURITUS
     Route: 048
     Dates: start: 20110415, end: 20110418
  5. WELLBUTRIN [Concomitant]
     Indication: DEPRESSION
     Route: 065

REACTIONS (4)
  - DEPRESSION [None]
  - EXPIRED DRUG ADMINISTERED [None]
  - DISEASE RECURRENCE [None]
  - SUICIDAL IDEATION [None]
